FAERS Safety Report 6843318-5 (Version None)
Quarter: 2010Q3

REPORT INFORMATION
  Report Type: 
  Country: None (occurrence: None)
  Receive Date: 20100715
  Receipt Date: 20100706
  Transmission Date: 20110219
  Serious: No
  Sender: FDA-Public Use
  Company Number: 2009BI022385

PATIENT
  Sex: Female

DRUGS (2)
  1. TYSABRI [Suspect]
     Indication: MULTIPLE SCLEROSIS
     Route: 042
     Dates: start: 20071220, end: 20091029
  2. TYSABRI [Suspect]
     Route: 042
     Dates: start: 20100514

REACTIONS (5)
  - ALOPECIA [None]
  - GAIT DISTURBANCE [None]
  - HAIR TEXTURE ABNORMAL [None]
  - MOBILITY DECREASED [None]
  - URINARY TRACT INFECTION [None]
